FAERS Safety Report 10605744 (Version 1)
Quarter: 2014Q4

REPORT INFORMATION
  Report Type: Spontaneous
  Country: GB (occurrence: GB)
  Receive Date: 20141125
  Receipt Date: 20141125
  Transmission Date: 20150529
  Serious: Yes (Death, Hospitalization)
  Sender: FDA-Public Use
  Company Number: GB-BRISTOL-MYERS SQUIBB COMPANY-21608443

PATIENT
  Age: 55 Year
  Sex: Male

DRUGS (7)
  1. LYXUMIA [Suspect]
     Active Substance: LIXISENATIDE
     Dates: start: 20140410, end: 2014
  2. BUMETANIDE. [Concomitant]
     Active Substance: BUMETANIDE
  3. AMITRIPTYLINE [Concomitant]
     Active Substance: AMITRIPTYLINE
  4. NOVOMIX [Concomitant]
     Active Substance: INSULIN ASPART
     Indication: TYPE 2 DIABETES MELLITUS
  5. EXENATIDE [Suspect]
     Active Substance: EXENATIDE
  6. METFORMIN HCL [Concomitant]
     Active Substance: METFORMIN HYDROCHLORIDE
  7. EZETIMIBE. [Concomitant]
     Active Substance: EZETIMIBE

REACTIONS (7)
  - Gastroenteritis [Fatal]
  - Haematochezia [Unknown]
  - Haematemesis [Unknown]
  - Myocardial infarction [Fatal]
  - Acute kidney injury [Unknown]
  - Gastrointestinal haemorrhage [Unknown]
  - Infection [Unknown]

NARRATIVE: CASE EVENT DATE: 20140419
